FAERS Safety Report 21488892 (Version 2)
Quarter: 2022Q4

REPORT INFORMATION
  Report Type: Report from Study
  Country: FR (occurrence: FR)
  Receive Date: 20221021
  Receipt Date: 20221206
  Transmission Date: 20230113
  Serious: Yes (Other)
  Sender: FDA-Public Use
  Company Number: FR-ABBVIE-4152834

PATIENT
  Age: 53 Year
  Sex: Male
  Weight: 80 kg

DRUGS (3)
  1. HUMIRA [Suspect]
     Active Substance: ADALIMUMAB
     Indication: Hidradenitis
     Route: 058
     Dates: start: 2022, end: 202210
  2. HUMIRA [Suspect]
     Active Substance: ADALIMUMAB
     Dosage: ONSET DATE: WEEK 2
     Route: 058
     Dates: start: 20220801, end: 20220801
  3. LEVOFLOXACIN [Concomitant]
     Active Substance: LEVOFLOXACIN
     Indication: Pneumonia
     Dates: start: 20221010, end: 20221017

REACTIONS (6)
  - Pulmonary infarction [Recovered/Resolved]
  - Pulmonary embolism [Unknown]
  - Limb discomfort [Unknown]
  - Nodule [Not Recovered/Not Resolved]
  - Pain in extremity [Unknown]
  - Pneumonia [Recovered/Resolved]

NARRATIVE: CASE EVENT DATE: 20220101
